FAERS Safety Report 6645722-7 (Version None)
Quarter: 2010Q1

REPORT INFORMATION
  Report Type: 
  Country: None (occurrence: None)
  Receive Date: 20100323
  Receipt Date: 20100313
  Transmission Date: 20100710
  Serious: Yes (Hospitalization, Other)
  Sender: FDA-Public Use
  Company Number: CA-ABBOTT-10P-028-0632256-00

PATIENT
  Sex: Female

DRUGS (5)
  1. HUMIRA [Suspect]
     Indication: RHEUMATOID ARTHRITIS
     Route: 058
     Dates: start: 20091123
  2. METHOTREXATE [Concomitant]
     Indication: DRUG USE FOR UNKNOWN INDICATION
  3. VENTOLIN [Concomitant]
     Indication: ASTHMA
     Dosage: QID
  4. ADVAIR DISKUS 100/50 [Concomitant]
     Indication: ASTHMA
  5. OVESCO [Concomitant]
     Indication: ASTHMA

REACTIONS (4)
  - ASTHMA [None]
  - ASTHMATIC CRISIS [None]
  - DYSPNOEA [None]
  - RESPIRATORY FAILURE [None]
